FAERS Safety Report 22280909 (Version 2)
Quarter: 2023Q2

REPORT INFORMATION
  Report Type: Report from Study
  Country: US (occurrence: None)
  Receive Date: 20230503
  Receipt Date: 20230621
  Transmission Date: 20230721
  Serious: Yes (Hospitalization)
  Sender: FDA-Public Use
  Company Number: US-ROCHE-3339730

PATIENT
  Weight: 132.5 kg

DRUGS (2)
  1. TRASTUZUMAB [Suspect]
     Active Substance: TRASTUZUMAB
     Indication: Plasma cell myeloma
     Dosage: DATE OF MOST RECENT DOSE OF STUDY DRUG:18/APR/2023
     Route: 058
     Dates: start: 20230411
  2. TUCATINIB [Suspect]
     Active Substance: TUCATINIB
     Indication: Plasma cell myeloma
     Dosage: DATE OF MOST RECENT DOSE OF STUDY DRUG: 18/APR/2023
     Route: 048
     Dates: start: 20230411

REACTIONS (1)
  - Sepsis [Recovered/Resolved]

NARRATIVE: CASE EVENT DATE: 20230417
